FAERS Safety Report 6203578-0 (Version None)
Quarter: 2009Q2

REPORT INFORMATION
  Report Type: 
  Country: None (occurrence: None)
  Receive Date: 20090527
  Receipt Date: 20090521
  Transmission Date: 20091009
  Serious: Yes (Life-Threatening)
  Sender: FDA-Public Use
  Company Number: JP-BRISTOL-MYERS SQUIBB COMPANY-14602981

PATIENT
  Age: 42 Year
  Sex: Male
  Weight: 71 kg

DRUGS (8)
  1. ERBITUX [Suspect]
     Indication: COLORECTAL CANCER RECURRENT
     Dosage: RECENT INFUSION ON 01-APR-2009
     Route: 042
     Dates: start: 20090219, end: 20090401
  2. IRINOTECAN HCL [Concomitant]
     Indication: RECTAL CANCER
     Route: 042
     Dates: start: 20090219
  3. FLUOROURACIL [Concomitant]
     Indication: RECTAL CANCER
     Dosage: 4250MG, 1 IN 2WK,INTRAVENOUSDRIP FROM 19FEB2009
     Route: 040
     Dates: start: 20090219
  4. LEUCOVORIN CALCIUM [Concomitant]
     Indication: RECTAL CANCER
     Route: 042
     Dates: start: 20090219
  5. DIPHENHYDRAMINE HCL [Concomitant]
     Indication: PREMEDICATION
     Route: 048
     Dates: start: 20090219
  6. DECADRON [Concomitant]
     Indication: PREMEDICATION
     Dosage: 2MG,ORAL FROM 01FEB09-21MAY09
     Route: 042
     Dates: start: 20090219
  7. GASTER [Concomitant]
     Dosage: TABLET
     Route: 048
     Dates: start: 20090201, end: 20090521
  8. CYANOCOBALAMIN [Concomitant]
     Route: 048
     Dates: start: 20090201, end: 20090521

REACTIONS (1)
  - NECROTISING FASCIITIS [None]
